FAERS Safety Report 25577224 (Version 1)
Quarter: 2025Q3

REPORT INFORMATION
  Report Type: Spontaneous
  Country: EU (occurrence: EU)
  Receive Date: 20250718
  Receipt Date: 20250718
  Transmission Date: 20251020
  Serious: Yes (Other)
  Sender: ORGANON
  Company Number: None

PATIENT
  Age: 55 Year
  Sex: Female

DRUGS (5)
  1. EZETIMIBE\SIMVASTATIN [Suspect]
     Active Substance: EZETIMIBE\SIMVASTATIN
     Dosage: 1 DOSAGE FORM, QD
     Route: 048
     Dates: start: 202309, end: 202310
  2. EZETIMIBE\SIMVASTATIN [Suspect]
     Active Substance: EZETIMIBE\SIMVASTATIN
     Dosage: 1 DOSAGE FORM, QD
     Route: 048
     Dates: start: 202309, end: 202310
  3. EZETIMIBE [Suspect]
     Active Substance: EZETIMIBE
     Dosage: 1 MILLIGRAM, QD
     Route: 048
     Dates: start: 202311, end: 202401
  4. CRESTOR [Suspect]
     Active Substance: ROSUVASTATIN CALCIUM
     Dosage: 1 DOSAGE FORM, QD
     Route: 048
     Dates: start: 201510
  5. PITAVASTATIN [Suspect]
     Active Substance: PITAVASTATIN
     Dosage: 1 MILLIGRAM, QD
     Route: 048
     Dates: start: 202412, end: 202501

REACTIONS (5)
  - Myalgia [Recovered/Resolved]
  - Constipation [Recovered/Resolved]
  - Vomiting [Recovered/Resolved]
  - Flatulence [Recovered/Resolved]
  - Dyspnoea [Recovered/Resolved]

NARRATIVE: CASE EVENT DATE: 20220101
